FAERS Safety Report 17984191 (Version 2)
Quarter: 2020Q3

REPORT INFORMATION
  Report Type: Spontaneous
  Country: PT (occurrence: PT)
  Receive Date: 20200706
  Receipt Date: 20200804
  Transmission Date: 20201103
  Serious: Yes (Life-Threatening, Hospitalization)
  Sender: FDA-Public Use
  Company Number: PT-JNJFOC-20200636054

PATIENT
  Age: 67 Year
  Sex: Male

DRUGS (3)
  1. RITONAVIR. [Suspect]
     Active Substance: RITONAVIR
     Indication: HIV INFECTION
     Route: 065
  2. PREZISTA [Suspect]
     Active Substance: DARUNAVIR ETHANOLATE
     Indication: HIV INFECTION
     Route: 048
  3. RALTEGRAVIR. [Suspect]
     Active Substance: RALTEGRAVIR
     Indication: HIV INFECTION
     Route: 065

REACTIONS (6)
  - Tracheobronchitis [Unknown]
  - Nosocomial infection [Unknown]
  - COVID-19 pneumonia [Unknown]
  - Herpes zoster [Unknown]
  - COVID-19 [Recovered/Resolved]
  - Dependence on respirator [Unknown]

NARRATIVE: CASE EVENT DATE: 2020
